FAERS Safety Report 12886182 (Version 2)
Quarter: 2016Q4

REPORT INFORMATION
  Report Type: Spontaneous
  Country: US (occurrence: US)
  Receive Date: 20161026
  Receipt Date: 20161111
  Transmission Date: 20170207
  Serious: Yes (Hospitalization)
  Sender: FDA-Public Use
  Company Number: US-WARNER CHILCOTT, LLC-1058862

PATIENT
  Age: 61 Year
  Sex: Female

DRUGS (3)
  1. ENABLEX [Suspect]
     Active Substance: DARIFENACIN HYDROBROMIDE
     Indication: INCONTINENCE
     Route: 065
  2. DITROPAN [Suspect]
     Active Substance: OXYBUTYNIN CHLORIDE
     Route: 065
  3. VESICARE [Suspect]
     Active Substance: SOLIFENACIN SUCCINATE
     Route: 065
     Dates: start: 2015, end: 2015

REACTIONS (4)
  - Urinary tract infection [Unknown]
  - Urosepsis [Unknown]
  - Calculus urinary [Unknown]
  - Drug ineffective [Unknown]
